FAERS Safety Report 5059898-9 (Version None)
Quarter: 2006Q3

REPORT INFORMATION
  Report Type: 
  Country: None (occurrence: None)
  Receive Date: 20060718
  Receipt Date: 20060630
  Transmission Date: 20061208
  Serious: Yes (Other)
  Sender: FDA-Public Use
  Company Number: FR200607000304

PATIENT
  Age: 55 Year
  Sex: Female

DRUGS (1)
  1. EVISTA [Suspect]
     Dosage: 60 MG, DAILY (1/D), ORAL
     Route: 048
     Dates: start: 20040101

REACTIONS (1)
  - LOSS OF CONSCIOUSNESS [None]
